FAERS Safety Report 11228504 (Version 3)
Quarter: 2015Q4

REPORT INFORMATION
  Report Type: Report from Study
  Country: US (occurrence: US)
  Receive Date: 20150630
  Receipt Date: 20151229
  Transmission Date: 20160304
  Serious: Yes (Hospitalization)
  Sender: FDA-Public Use
  Company Number: US-ACTELION-A-NJ2015-120065

PATIENT
  Age: 77 Year
  Sex: Female

DRUGS (1)
  1. TRACLEER [Suspect]
     Active Substance: BOSENTAN
     Indication: PULMONARY ARTERIAL HYPERTENSION
     Dosage: UNK
     Route: 048
     Dates: start: 20131015

REACTIONS (5)
  - Bacterial infection [Unknown]
  - Localised infection [Recovered/Resolved]
  - Heart rate decreased [Recovering/Resolving]
  - Dialysis related complication [Unknown]
  - Renal ischaemia [Recovering/Resolving]

NARRATIVE: CASE EVENT DATE: 20150603
